FAERS Safety Report 5658122-3 (Version None)
Quarter: 2008Q1

REPORT INFORMATION
  Report Type: 
  Country: None (occurrence: None)
  Receive Date: 20080310
  Receipt Date: 20070112
  Transmission Date: 20080703
  Serious: No
  Sender: FDA-Public Use
  Company Number: US-BAYER-200710013BCC

PATIENT
  Age: 23 Year
  Sex: Female
  Weight: 145 kg

DRUGS (2)
  1. ALEVE [Suspect]
     Indication: HEADACHE
     Dosage: UNIT DOSE: 220 MG
     Route: 048
     Dates: start: 20061223
  2. ALEVE [Suspect]
     Dosage: TOTAL DAILY DOSE: 1320 MG  UNIT DOSE: 220 MG
     Dates: start: 20061220, end: 20061222

REACTIONS (3)
  - DIZZINESS [None]
  - MICTURITION DISORDER [None]
  - POLLAKIURIA [None]
